FAERS Safety Report 9702671 (Version 4)
Quarter: 2015Q1

REPORT INFORMATION
  Report Type: Spontaneous
  Country: JP (occurrence: None)
  Receive Date: 20131120
  Receipt Date: 20150226
  Transmission Date: 20150721
  Serious: Yes (Other)
  Sender: FDA-Public Use
  Company Number: 1311-1463

PATIENT
  Age: 76 Year
  Sex: Male

DRUGS (7)
  1. POVIDONE-IODINE. [Concomitant]
     Active Substance: POVIDONE-IODINE
  2. EYLEA [Suspect]
     Active Substance: AFLIBERCEPT
     Indication: NEOVASCULAR AGE-RELATED MACULAR DEGENERATION
     Route: 031
     Dates: start: 20130821, end: 20130821
  3. BENOXIL (OXYBUPROCAINE HYDROCHLORIDE) [Concomitant]
  4. GATIFLO (GATIFLOXACIN) [Concomitant]
  5. DROSYN-T (PHENYLEPHRINE HYDROCHLORIDE, TROPICAMIDE) [Concomitant]
  6. XYLOCAINE [Concomitant]
     Active Substance: LIDOCAINE HYDROCHLORIDE
  7. XYLOCAINE [Concomitant]
     Active Substance: LIDOCAINE HYDROCHLORIDE

REACTIONS (2)
  - Wrong technique in drug usage process [None]
  - Macular hole [None]

NARRATIVE: CASE EVENT DATE: 20131106
